FAERS Safety Report 5471827-2 (Version None)
Quarter: 2007Q3

REPORT INFORMATION
  Report Type: 
  Country: None (occurrence: None)
  Receive Date: 20070928
  Receipt Date: 20070628
  Transmission Date: 20080115
  Serious: No
  Sender: FDA-Public Use
  Company Number: US-BRISTOL-MYERS SQUIBB COMPANY-13814587

PATIENT
  Age: 77 Year
  Sex: Male

DRUGS (11)
  1. DEFINITY [Suspect]
     Indication: ECHOCARDIOGRAM
     Dosage: WITH 8.5ML OF FREE SALINE PRESERVATIVE.
     Route: 042
  2. CARDIOLITE INJ [Suspect]
  3. AMARYL [Concomitant]
  4. ASPIRIN [Concomitant]
  5. COUMADIN [Concomitant]
  6. NORVASC [Concomitant]
  7. HYZAAR [Concomitant]
  8. PLAVIX [Concomitant]
  9. PRAVACHOL [Concomitant]
  10. TOPROL-XL [Concomitant]
  11. ZETIA [Concomitant]

REACTIONS (3)
  - ARTHRALGIA [None]
  - BACK PAIN [None]
  - PAIN IN EXTREMITY [None]
